FAERS Safety Report 25383353 (Version 3)
Quarter: 2025Q3

REPORT INFORMATION
  Report Type: Report from Study
  Country: US (occurrence: US)
  Receive Date: 20250602
  Receipt Date: 20250704
  Transmission Date: 20251021
  Serious: Yes (Hospitalization, Other)
  Sender: TAKEDA
  Company Number: US-TAKEDA-2025TUS049983

PATIENT
  Sex: Male

DRUGS (1)
  1. VEDOLIZUMAB [Suspect]
     Active Substance: VEDOLIZUMAB
     Indication: Colitis ulcerative

REACTIONS (6)
  - Colitis ulcerative [Unknown]
  - Clostridium difficile infection [Unknown]
  - Blood creatinine increased [Unknown]
  - Eosinophil count increased [Unknown]
  - Drug ineffective [Unknown]
  - Product dose omission issue [Unknown]
